FAERS Safety Report 7519460-2 (Version None)
Quarter: 2011Q2

REPORT INFORMATION
  Report Type: 
  Country: None (occurrence: None)
  Receive Date: 20110524
  Receipt Date: 20110427
  Transmission Date: 20111010
  Serious: Yes (Hospitalization)
  Sender: FDA-Public Use
  Company Number: 7019139

PATIENT
  Age: 46 Year
  Sex: Female

DRUGS (23)
  1. PARACETAMOL (DAFALGAN FORTE) (PARACETAMOL) [Concomitant]
  2. ENOXAPARINE (CLEXANE) (ENOXAPARIN SODIUM) [Concomitant]
  3. CEFUROXIME AXETIL [Concomitant]
  4. FLUOROURACIL (FLUOROCURACIL) (INTRAVENOS INFUSION) (FLUOROCURACIL) [Suspect]
     Indication: COLON CANCER
     Dosage: SEE IMGE
     Route: 042
     Dates: start: 20100712
  5. FLUOROURACIL (FLUOROCURACIL) (INTRAVENOS INFUSION) (FLUOROCURACIL) [Suspect]
     Indication: COLON CANCER
     Dosage: SEE IMGE
     Route: 042
     Dates: start: 20100809
  6. FLUOROURACIL (FLUOROCURACIL) (INTRAVENOS INFUSION) (FLUOROCURACIL) [Suspect]
     Indication: COLON CANCER
     Dosage: SEE IMGE
     Route: 042
     Dates: start: 20100824
  7. FLUOROURACIL (FLUOROCURACIL) (INTRAVENOS INFUSION) (FLUOROCURACIL) [Suspect]
     Indication: COLON CANCER
     Dosage: SEE IMGE
     Route: 042
     Dates: start: 20100628
  8. PANTAPRAZOL (PANTOMED) (PANTOPRAZOLE) [Concomitant]
  9. PHENTANYL (DUROGESIC) (FENTANYL) [Concomitant]
  10. AMLODIPINE (AMLOR) (AMLODIPINE) [Concomitant]
  11. FOLINIC ACID (FOLINIC ACID) (INTRAVENOUS INFUSION) (FOLINIC ACID) [Suspect]
     Indication: COLON CANCER
     Dosage: SEE IMAGE
     Route: 042
     Dates: start: 20100824
  12. FOLINIC ACID (FOLINIC ACID) (INTRAVENOUS INFUSION) (FOLINIC ACID) [Suspect]
     Indication: COLON CANCER
     Dosage: SEE IMAGE
     Route: 042
     Dates: start: 20100809
  13. FOLINIC ACID (FOLINIC ACID) (INTRAVENOUS INFUSION) (FOLINIC ACID) [Suspect]
     Indication: COLON CANCER
     Dosage: SEE IMAGE
     Route: 042
     Dates: start: 20100628
  14. FOLINIC ACID (FOLINIC ACID) (INTRAVENOUS INFUSION) (FOLINIC ACID) [Suspect]
     Indication: COLON CANCER
     Dosage: SEE IMAGE
     Route: 042
     Dates: start: 20100712
  15. ESCITALOPRAM (SIPRALEXA) (ESCITALOPRAM) [Concomitant]
  16. IRINOTECAN (IRINOTEAN HYDROCHLORIDE) (INTAVENOUS INFUSION) (IRINOTECAN [Suspect]
     Indication: COLON CANCER
     Dosage: SEE IMAGE
     Route: 042
     Dates: start: 20100712
  17. IRINOTECAN (IRINOTEAN HYDROCHLORIDE) (INTAVENOUS INFUSION) (IRINOTECAN [Suspect]
     Indication: COLON CANCER
     Dosage: SEE IMAGE
     Route: 042
     Dates: start: 20100809
  18. IRINOTECAN (IRINOTEAN HYDROCHLORIDE) (INTAVENOUS INFUSION) (IRINOTECAN [Suspect]
     Indication: COLON CANCER
     Dosage: SEE IMAGE
     Route: 042
     Dates: start: 20100824
  19. IRINOTECAN (IRINOTEAN HYDROCHLORIDE) (INTAVENOUS INFUSION) (IRINOTECAN [Suspect]
     Indication: COLON CANCER
     Dosage: SEE IMAGE
     Route: 042
     Dates: start: 20100628
  20. ORMETAZEPAM EG (LORMETAZEPAM) [Concomitant]
  21. DOMPERIDON (MOTILIUM) (DOMPERIDONE MALEATE) [Concomitant]
  22. MEK INHIBITOR (AS703026) (MEK INHIBITORE (AS703026) [Suspect]
     Indication: COLON CANCER
     Dosage: 45 MG, 1 IN 1  D), ORAL
     Route: 048
     Dates: start: 20100628, end: 20100929
  23. MORFINE (MS DIRECT) (MORPHINE) [Concomitant]

REACTIONS (7)
  - MYOCARDIAL ISCHAEMIA [None]
  - HYPOKALAEMIA [None]
  - EJECTION FRACTION DECREASED [None]
  - MITRAL VALVE INCOMPETENCE [None]
  - ELECTROCARDIOGRAM QT PROLONGED [None]
  - TRICUSPID VALVE INCOMPETENCE [None]
  - SINUS TACHYCARDIA [None]
